FAERS Safety Report 7437947-8 (Version None)
Quarter: 2011Q2

REPORT INFORMATION
  Report Type: 
  Country: None (occurrence: None)
  Receive Date: 20110426
  Receipt Date: 20110411
  Transmission Date: 20111010
  Serious: No
  Sender: FDA-Public Use
  Company Number: US-JNJFOC-20110406173

PATIENT
  Sex: Male

DRUGS (12)
  1. FENTANYL-100 [Suspect]
     Indication: NEUROPATHY PERIPHERAL
     Route: 062
  2. FENTANYL-100 [Suspect]
     Route: 062
  3. FENTANYL-100 [Suspect]
     Indication: FRACTURE
     Route: 062
  4. FENTANYL-100 [Suspect]
     Route: 062
  5. FENTANYL-100 [Suspect]
     Indication: NEUROPATHY PERIPHERAL
     Route: 062
  6. FENTANYL-100 [Suspect]
     Route: 062
  7. FENTANYL-100 [Suspect]
     Route: 062
  8. FENTANYL-100 [Suspect]
     Indication: TRIGEMINAL NEURALGIA
     Route: 062
  9. FENTANYL-100 [Suspect]
     Indication: FRACTURE
     Route: 062
  10. FENTANYL-100 [Suspect]
     Indication: TRIGEMINAL NEURALGIA
     Route: 062
  11. FENTANYL-100 [Suspect]
     Route: 062
  12. FENTANYL-100 [Suspect]
     Route: 062

REACTIONS (6)
  - HEADACHE [None]
  - PRODUCT QUALITY ISSUE [None]
  - INAPPROPRIATE SCHEDULE OF DRUG ADMINISTRATION [None]
  - HYPERHIDROSIS [None]
  - WITHDRAWAL SYNDROME [None]
  - CHILLS [None]
